FAERS Safety Report 20706996 (Version 2)
Quarter: 2022Q2

REPORT INFORMATION
  Report Type: Spontaneous
  Country: US (occurrence: US)
  Receive Date: 20220413
  Receipt Date: 20220628
  Transmission Date: 20220720
  Serious: Yes (Other)
  Sender: FDA-Public Use
  Company Number: US-REGENERON PHARMACEUTICALS, INC.-2022-45748

PATIENT
  Sex: Male

DRUGS (16)
  1. EYLEA [Suspect]
     Active Substance: AFLIBERCEPT
     Indication: Neovascular age-related macular degeneration
     Dosage: UNK, RIGHT EYE; FORMULATION:  INJECTION
     Route: 031
  2. EYLEA [Suspect]
     Active Substance: AFLIBERCEPT
     Indication: Choroidal neovascularisation
     Dosage: UNK, RIGHT EYE, FORMULATION:  INJECTION
     Route: 031
     Dates: start: 20211026, end: 20211026
  3. EYLEA [Suspect]
     Active Substance: AFLIBERCEPT
     Dosage: RIGHT EYE, 32 (1X2) DOSE,  FORMULATION:  INJECTION
     Route: 031
     Dates: start: 20220111, end: 20220111
  4. EYLEA [Suspect]
     Active Substance: AFLIBERCEPT
     Dosage: RIGHT EYE 33 (2 OF 2),  FORMULATION:  INJECTION
     Route: 031
     Dates: start: 20220222, end: 20220222
  5. PRAVASTATIN [Concomitant]
     Active Substance: PRAVASTATIN
     Indication: Product used for unknown indication
     Dosage: 20 MG TABLET
     Route: 048
  6. LEVOTHYROXINE SODIUM [Concomitant]
     Active Substance: LEVOTHYROXINE SODIUM
     Indication: Product used for unknown indication
     Dosage: 75 ?G, TABLET
     Route: 048
  7. TYLENOL PM [Concomitant]
     Active Substance: ACETAMINOPHEN\DIPHENHYDRAMINE
     Indication: Product used for unknown indication
     Dosage: 325 MG, 1 DF, AS NECESSARY
     Route: 048
  8. VITAMIN D3 [Concomitant]
     Active Substance: CHOLECALCIFEROL
     Indication: Product used for unknown indication
     Dosage: 1 DF, QD, TABLET
     Route: 048
  9. VITAMIN B12 [Concomitant]
     Active Substance: CYANOCOBALAMIN
     Indication: Product used for unknown indication
     Dosage: 1 DF, QD, TABLET
     Route: 048
  10. CIPRO                              /00697201/ [Concomitant]
     Indication: Product used for unknown indication
     Dosage: 1 DF, BID TABLET
     Route: 048
  11. PREDNISOLONE ACETATE [Concomitant]
     Active Substance: PREDNISOLONE ACETATE
     Indication: Product used for unknown indication
     Dosage: 1 GTT, QID RIGHT EYE (1 PERCENT SUSPENSION)
     Route: 047
  12. FLURESS                            /00181001/ [Concomitant]
     Indication: Pupil dilation procedure
     Dosage: RIGHT EYE, 1 PERCENT
     Dates: start: 20220222, end: 20220222
  13. TROPICAMIDE [Concomitant]
     Active Substance: TROPICAMIDE
     Indication: Pupil dilation procedure
     Dosage: RIGHT EYE, 1 PERCENT
     Dates: start: 20220222, end: 20220222
  14. TROPICAMIDE [Concomitant]
     Active Substance: TROPICAMIDE
     Dosage: RIGHT EYE, 1 PERCENT
     Dates: start: 20220227, end: 20220227
  15. PHENYLEPHRINE [Concomitant]
     Active Substance: PHENYLEPHRINE HYDROCHLORIDE
     Indication: Pupil dilation procedure
     Dosage: RIGHT EYE, 2.5 PERCENT
     Dates: start: 20220222, end: 20220222
  16. PROPARACAINE                       /00143101/ [Concomitant]
     Indication: Pupil dilation procedure
     Dosage: RIGHT EYE, 0.5 PERCENT
     Dates: start: 20220227, end: 20220227

REACTIONS (11)
  - Blindness unilateral [Unknown]
  - Dry age-related macular degeneration [Unknown]
  - Retinal occlusive vasculitis [Unknown]
  - Endophthalmitis [Unknown]
  - Vitreous detachment [Unknown]
  - Eye pruritus [Unknown]
  - Vitrectomy [Unknown]
  - Vitreous opacities [Unknown]
  - Visual acuity reduced [Unknown]
  - Epiretinal membrane [Unknown]
  - Lacrimation increased [Unknown]

NARRATIVE: CASE EVENT DATE: 20220101
